FAERS Safety Report 25205200 (Version 3)
Quarter: 2025Q3

REPORT INFORMATION
  Report Type: Report from Study
  Country: CA (occurrence: CA)
  Receive Date: 20250417
  Receipt Date: 20250923
  Transmission Date: 20251020
  Serious: Yes (Other)
  Sender: CELLTRION
  Company Number: CA-CELLTRION INC.-2024CA030363

PATIENT

DRUGS (3)
  1. ADALIMUMAB-AATY [Suspect]
     Active Substance: ADALIMUMAB-AATY
     Indication: Psoriatic arthropathy
     Dosage: 40 MG ONCE WEEKLY/1 EVERY 1 WEEKS
     Route: 058
  2. ADALIMUMAB-AATY [Suspect]
     Active Substance: ADALIMUMAB-AATY
     Dosage: MAINTENANCE - 40 MG - SC (SUBCUTANEOUS) EVERY 14 DAYS/1 EVERY 2 WEEKS
     Route: 058
     Dates: start: 20240424, end: 20250415
  3. INFLIXIMAB [Suspect]
     Active Substance: INFLIXIMAB
     Indication: Psoriatic arthropathy
     Route: 042
     Dates: start: 20250426

REACTIONS (8)
  - Colonoscopy [Recovering/Resolving]
  - Swelling [Recovering/Resolving]
  - Accidental overdose [Recovering/Resolving]
  - Therapeutic response decreased [Recovering/Resolving]
  - Therapy change [Recovering/Resolving]
  - Intentional product use issue [Recovering/Resolving]
  - Underdose [Recovering/Resolving]
  - Urinary tract infection [Unknown]

NARRATIVE: CASE EVENT DATE: 20240424
